FAERS Safety Report 8621053 (Version 2)
Quarter: 2013Q1

REPORT INFORMATION
  Report Type: Spontaneous
  Country: CA (occurrence: None)
  Receive Date: 20120604
  Receipt Date: 20120918
  Transmission Date: 20140127
  Serious: Yes (Life-Threatening, Other)
  Sender: FDA-Public Use
  Company Number: 2012-002024

PATIENT
  Age: 80 Year
  Sex: Female

DRUGS (2)
  1. ACTONEL [Suspect]
     Dosage: ORAL
     Route: 048
     Dates: start: 20110808
  2. ZOLEDRONIC ACID [Suspect]
     Indication: OSTEOPOROSIS
     Dosage: 5 MG, INTRAVENOUS
     Route: 042
     Dates: start: 20100830

REACTIONS (8)
  - Asthenia [None]
  - Eye pain [None]
  - Feeling abnormal [None]
  - Headache [None]
  - Malaise [None]
  - Toothache [None]
  - Visual impairment [None]
  - Angina pectoris [None]
